FAERS Safety Report 5294366-0 (Version None)
Quarter: 2007Q2

REPORT INFORMATION
  Report Type: 
  Country: None (occurrence: None)
  Receive Date: 20070412
  Receipt Date: 20070406
  Transmission Date: 20071010
  Serious: Yes (Life-Threatening)
  Sender: FDA-Public Use
  Company Number: PHBS2007IT06017

PATIENT

DRUGS (1)
  1. LAMPRENE [Suspect]
     Route: 048

REACTIONS (2)
  - OVERDOSE [None]
  - SUICIDE ATTEMPT [None]
